FAERS Safety Report 9055420 (Version 1)
Quarter: 2013Q1

REPORT INFORMATION
  Report Type: Spontaneous
  Country: JP (occurrence: JP)
  Receive Date: 20130206
  Receipt Date: 20130206
  Transmission Date: 20140127
  Serious: Yes (Death)
  Sender: FDA-Public Use
  Company Number: JP-OTSUKA-010987

PATIENT
  Sex: Female

DRUGS (1)
  1. PLETAAL [Suspect]
     Dosage: UNK
     Route: 048
     Dates: start: 20100726

REACTIONS (2)
  - Death [Fatal]
  - Alopecia [Unknown]
